FAERS Safety Report 22945622 (Version 2)
Quarter: 2023Q4

REPORT INFORMATION
  Report Type: Report from Study
  Country: CO (occurrence: CO)
  Receive Date: 20230914
  Receipt Date: 20231206
  Transmission Date: 20240109
  Serious: Yes (Hospitalization)
  Sender: FDA-Public Use
  Company Number: CO-BIOGEN-2023BI01195992

PATIENT
  Sex: Male
  Weight: 16 kg

DRUGS (3)
  1. SPINRAZA [Suspect]
     Active Substance: NUSINERSEN
     Indication: Spinal muscular atrophy
     Dosage: MAINTENANCE DOSE
     Route: 050
     Dates: start: 20200204
  2. SALMETEROL [Concomitant]
     Active Substance: SALMETEROL
     Indication: Respiratory disorder
     Dosage: 2 PUFFS EVERY 12 HOURS
     Route: 050
     Dates: start: 202205
  3. MONTELUKAST [Concomitant]
     Active Substance: MONTELUKAST SODIUM
     Indication: Asthma
     Route: 050
     Dates: start: 2019

REACTIONS (11)
  - Gastrointestinal haemorrhage [Not Recovered/Not Resolved]
  - Constipation [Not Recovered/Not Resolved]
  - Pneumonia [Recovered/Resolved]
  - Scoliosis [Not Recovered/Not Resolved]
  - Atelectasis [Recovered/Resolved]
  - Osteopenia [Not Recovered/Not Resolved]
  - Muscle disorder [Not Recovered/Not Resolved]
  - Pain in extremity [Not Recovered/Not Resolved]
  - Hypoaesthesia [Not Recovered/Not Resolved]
  - Vitamin D deficiency [Not Recovered/Not Resolved]
  - Physical examination abnormal [Not Recovered/Not Resolved]

NARRATIVE: CASE EVENT DATE: 20220101
